FAERS Safety Report 11619186 (Version 2)
Quarter: 2016Q3

REPORT INFORMATION
  Report Type: Spontaneous
  Country: US (occurrence: US)
  Receive Date: 20151012
  Receipt Date: 20160805
  Transmission Date: 20161109
  Serious: Yes (Other)
  Sender: FDA-Public Use
  Company Number: US-BAYER-2015-435851

PATIENT
  Sex: Male
  Weight: 74.83 kg

DRUGS (4)
  1. MOXIFLOXACIN. [Suspect]
     Active Substance: MOXIFLOXACIN
     Indication: SINUSITIS
     Dosage: 300 MG, UNK
     Dates: start: 2011, end: 2014
  2. AVELOX [Suspect]
     Active Substance: MOXIFLOXACIN HYDROCHLORIDE
     Indication: SINUSITIS
     Dosage: 300 MG, UNK
     Dates: start: 2011, end: 2014
  3. CIPRO [Suspect]
     Active Substance: CIPROFLOXACIN HYDROCHLORIDE
     Indication: SINUSITIS
     Dosage: 300 MG, UNK
     Dates: start: 2011, end: 2014
  4. LEVAQUIN [Suspect]
     Active Substance: LEVOFLOXACIN
     Indication: SINUSITIS
     Dosage: 300 MG, UNK
     Dates: start: 2011, end: 2014

REACTIONS (11)
  - Pain in extremity [None]
  - Hypoaesthesia [None]
  - Bedridden [None]
  - Emotional distress [None]
  - Anxiety [None]
  - Neuropathy peripheral [None]
  - Hypoaesthesia [None]
  - Pain [None]
  - Injury [None]
  - Pain in extremity [None]
  - Depression [None]

NARRATIVE: CASE EVENT DATE: 2012
